FAERS Safety Report 9005610 (Version 1)
Quarter: 2013Q1

REPORT INFORMATION
  Report Type: Spontaneous
  Country: US (occurrence: US)
  Receive Date: 20130109
  Receipt Date: 20130109
  Transmission Date: 20140127
  Serious: Yes (Death)
  Sender: FDA-Public Use
  Company Number: US-BAYER-2013-002478

PATIENT
  Age: 56 Year
  Sex: Female

DRUGS (11)
  1. NAPROXEN SODIUM ({= 220 MG) [Suspect]
  2. ANTIDEPRESSANTS [Suspect]
  3. CITALOPRAM [Suspect]
  4. LISINOPRIL [Suspect]
  5. CLONAZEPAM [Suspect]
  6. GABAPENTIN [Suspect]
  7. CYCLOBENZAPRINE [Suspect]
  8. BUTALBITAL, ACETAMINOPHEN AND CAFFEINE PLUS [Suspect]
  9. ZOLPIDEM [Suspect]
  10. SUMATRIPTAN [Suspect]
  11. UNSPECIFIED INGREDIENT [Suspect]

REACTIONS (2)
  - Toxicity to various agents [Fatal]
  - Completed suicide [None]
